FAERS Safety Report 25163495 (Version 2)
Quarter: 2025Q2

REPORT INFORMATION
  Report Type: Report from Study
  Country: US (occurrence: US)
  Receive Date: 20250405
  Receipt Date: 20250613
  Transmission Date: 20250716
  Serious: Yes (Hospitalization, Other)
  Sender: ABBVIE
  Company Number: US-ABBVIE-6176016

PATIENT
  Age: 67 Year
  Sex: Female
  Weight: 98.429 kg

DRUGS (3)
  1. HUMIRA [Suspect]
     Active Substance: ADALIMUMAB
     Indication: Rheumatoid arthritis
     Dosage: FORM STRENGTH: 40 MILLIGRAM
     Route: 058
     Dates: start: 20220606, end: 20250301
  2. METOPROLOL [Concomitant]
     Active Substance: METOPROLOL
     Indication: Blood pressure measurement
     Dates: start: 20240101
  3. TELMISARTAN [Concomitant]
     Active Substance: TELMISARTAN
     Indication: Blood pressure measurement

REACTIONS (9)
  - Legionella infection [Recovering/Resolving]
  - Fall [Recovered/Resolved]
  - Blood pressure increased [Recovered/Resolved]
  - Dizziness [Recovering/Resolving]
  - Immune system disorder [Not Recovered/Not Resolved]
  - Altered state of consciousness [Recovered/Resolved]
  - Fatigue [Unknown]
  - Confusional state [Unknown]
  - Depression [Unknown]

NARRATIVE: CASE EVENT DATE: 20250301
